FAERS Safety Report 9498218 (Version 1)
Quarter: 2013Q3

REPORT INFORMATION
  Report Type: Report from Study
  Country: US (occurrence: US)
  Receive Date: 20130904
  Receipt Date: 20130904
  Transmission Date: 20140515
  Serious: Yes (Other)
  Sender: FDA-Public Use
  Company Number: US-ABBOTT-13P-163-1139730-00

PATIENT
  Sex: Male

DRUGS (10)
  1. NIASPAN (COATED) [Suspect]
     Indication: BLOOD CHOLESTEROL INCREASED
     Dosage: AT SLEEP
     Dates: start: 2003
  2. NIASPAN (COATED) [Suspect]
  3. NIASPAN (COATED) [Suspect]
  4. CRESTOR [Concomitant]
     Indication: PRODUCT USED FOR UNKNOWN INDICATION
  5. LOTREL [Concomitant]
     Indication: PRODUCT USED FOR UNKNOWN INDICATION
  6. ASA [Concomitant]
     Indication: PRODUCT USED FOR UNKNOWN INDICATION
  7. ASA [Concomitant]
     Dosage: BABY DOSE
  8. ASA [Concomitant]
     Dosage: 2 BABY DOSES
  9. ASA [Concomitant]
  10. UNKNOWN MEDICATIONS [Concomitant]
     Indication: PRODUCT USED FOR UNKNOWN INDICATION

REACTIONS (4)
  - Coronary artery bypass [Unknown]
  - Drug ineffective [Unknown]
  - Flushing [Recovered/Resolved]
  - Paraesthesia [Unknown]
